FAERS Safety Report 15349162 (Version 1)
Quarter: 2018Q3

REPORT INFORMATION
  Report Type: Spontaneous
  Country: US (occurrence: US)
  Receive Date: 20180904
  Receipt Date: 20180904
  Transmission Date: 20181010
  Serious: No
  Sender: FDA-Public Use
  Company Number: US-AMNEAL PHARMACEUTICALS-2018AMN00421

PATIENT
  Sex: Male
  Weight: 131.52 kg

DRUGS (6)
  1. GABAPENTIN. [Suspect]
     Active Substance: GABAPENTIN
     Indication: NERVE INJURY
     Dosage: 3 CAPSULES, 1X/DAY
     Route: 048
     Dates: start: 20180619, end: 20180710
  2. WARFARIN [Concomitant]
     Active Substance: WARFARIN
  3. ADVAIR HFA [Concomitant]
     Active Substance: FLUTICASONE PROPIONATE\SALMETEROL XINAFOATE
  4. VENTOLIN HFA INHALER [Concomitant]
  5. DULOXETINE. [Concomitant]
     Active Substance: DULOXETINE
  6. BUPROPRION SR [Concomitant]
     Active Substance: BUPROPION

REACTIONS (2)
  - Abdominal pain upper [Not Recovered/Not Resolved]
  - Dysgeusia [Not Recovered/Not Resolved]
